FAERS Safety Report 5387283-9 (Version None)
Quarter: 2007Q3

REPORT INFORMATION
  Report Type: 
  Country: None (occurrence: None)
  Receive Date: 20070716
  Receipt Date: 20070706
  Transmission Date: 20080115
  Serious: Yes (Other)
  Sender: FDA-Public Use
  Company Number: PHHO2007BR11154

PATIENT
  Age: 51 Year
  Sex: Male
  Weight: 85 kg

DRUGS (4)
  1. FORASEQ [Suspect]
     Dosage: 12/400 MCG 60/60
  2. RISPERIDONE [Concomitant]
     Indication: SCHIZOPHRENIA
     Dosage: 3 MG, UNK
     Route: 048
  3. RISPERIDONE [Concomitant]
     Dosage: 2 MG, UNK
     Route: 048
  4. MELLARIL [Concomitant]

REACTIONS (8)
  - DEPRESSED MOOD [None]
  - DRUG INTERACTION [None]
  - HALLUCINATION [None]
  - IMPAIRED SELF-CARE [None]
  - INAPPROPRIATE AFFECT [None]
  - MUTISM [None]
  - SCHIZOPHRENIA [None]
  - SPEECH DISORDER [None]
